FAERS Safety Report 12483077 (Version 3)
Quarter: 2016Q3

REPORT INFORMATION
  Report Type: Report from Study
  Country: NL (occurrence: NL)
  Receive Date: 20160620
  Receipt Date: 20160908
  Transmission Date: 20161109
  Serious: Yes (Hospitalization)
  Sender: FDA-Public Use
  Company Number: NL-BIOGEN-2016BI00253230

PATIENT
  Age: 40 Year
  Sex: Female

DRUGS (1)
  1. AVONEX [Suspect]
     Active Substance: INTERFERON BETA-1A
     Indication: MULTIPLE SCLEROSIS
     Route: 030
     Dates: start: 20081104

REACTIONS (3)
  - Multiple sclerosis relapse [Recovered/Resolved]
  - Nuclear magnetic resonance imaging abnormal [Unknown]
  - Quadriplegia [Recovered/Resolved]

NARRATIVE: CASE EVENT DATE: 20160510
